FAERS Safety Report 25456731 (Version 4)
Quarter: 2025Q3

REPORT INFORMATION
  Report Type: Report from Study
  Country: US (occurrence: US)
  Receive Date: 20250619
  Receipt Date: 20250822
  Transmission Date: 20251021
  Serious: No
  Sender: SUNOVION
  Company Number: US-SUMITOMO PHARMA SWITZERLAND GMBH-2025SPA006535

PATIENT
  Age: 61 Year
  Sex: Male

DRUGS (12)
  1. ORGOVYX [Suspect]
     Active Substance: RELUGOLIX
     Indication: Prostate cancer
     Dosage: 360 MG, SINGLE
     Route: 048
     Dates: start: 202504, end: 202504
  2. ORGOVYX [Suspect]
     Active Substance: RELUGOLIX
     Indication: Prostatic specific antigen increased
     Dosage: 120 MG, QD
     Route: 048
     Dates: start: 202504
  3. ATORVASTATIN [Concomitant]
     Active Substance: ATORVASTATIN
  4. GABAPENTIN [Concomitant]
     Active Substance: GABAPENTIN
  5. HYDROCHLOROTHIAZIDE [Concomitant]
     Active Substance: HYDROCHLOROTHIAZIDE
  6. LOSARTAN [Concomitant]
     Active Substance: LOSARTAN
  7. NIFEDIPINE [Concomitant]
     Active Substance: NIFEDIPINE
  8. OXYBUTYNIN [Concomitant]
     Active Substance: OXYBUTYNIN
  9. PROPRANOLOL [Concomitant]
     Active Substance: PROPRANOLOL HYDROCHLORIDE
  10. VITAMIN D3 [Concomitant]
     Active Substance: CHOLECALCIFEROL
  11. LIDOCAINE [Concomitant]
     Active Substance: LIDOCAINE
  12. MEMANTINE [Concomitant]
     Active Substance: MEMANTINE

REACTIONS (4)
  - Neuralgia [Unknown]
  - Hot flush [Not Recovered/Not Resolved]
  - Product dose omission in error [Recovered/Resolved]
  - Product dose omission issue [Unknown]

NARRATIVE: CASE EVENT DATE: 20250517
